FAERS Safety Report 11790466 (Version 2)
Quarter: 2015Q4

REPORT INFORMATION
  Report Type: Spontaneous
  Country: US (occurrence: US)
  Receive Date: 20151201
  Receipt Date: 20151223
  Transmission Date: 20160305
  Serious: Yes (Death, Other)
  Sender: FDA-Public Use
  Company Number: US-009507513-1512USA000403

PATIENT
  Sex: Female
  Weight: 72.56 kg

DRUGS (2)
  1. VICTOZA [Suspect]
     Active Substance: LIRAGLUTIDE
     Indication: TYPE 2 DIABETES MELLITUS
     Dosage: 1.8 MG, QD
     Dates: start: 20130429, end: 20131001
  2. JANUVIA [Suspect]
     Active Substance: SITAGLIPTIN PHOSPHATE
     Indication: TYPE 2 DIABETES MELLITUS
     Dosage: 100 MG, QD
     Route: 048
     Dates: start: 20070110, end: 20081029

REACTIONS (30)
  - Metastases to spleen [Unknown]
  - Hypoglycaemia [Unknown]
  - Renal haematoma [Unknown]
  - Ileal stenosis [Unknown]
  - Metastases to lung [Unknown]
  - Neuropathy peripheral [Unknown]
  - Peripheral swelling [Recovered/Resolved]
  - Lung infection [Unknown]
  - Oedema peripheral [Unknown]
  - Death [Fatal]
  - Splenic vein occlusion [Unknown]
  - Arterial occlusive disease [Unknown]
  - Arteriosclerosis [Unknown]
  - Radiotherapy to abdomen [Unknown]
  - Fungal infection [Unknown]
  - Metastases to kidney [Unknown]
  - Metastases to abdominal wall [Unknown]
  - Crohn^s disease [Not Recovered/Not Resolved]
  - Retroperitoneal lymphadenopathy [Unknown]
  - Autoimmune disorder [Unknown]
  - Dilatation ventricular [Unknown]
  - Metastases to lymph nodes [Unknown]
  - Metastases to soft tissue [Unknown]
  - Metastases to adrenals [Unknown]
  - Pulmonary embolism [Unknown]
  - Pleural effusion [Unknown]
  - Soft tissue disorder [Not Recovered/Not Resolved]
  - Headache [Recovered/Resolved]
  - Pancreatic carcinoma metastatic [Unknown]
  - Hydronephrosis [Unknown]

NARRATIVE: CASE EVENT DATE: 2007
